FAERS Safety Report 21267724 (Version 9)
Quarter: 2025Q3

REPORT INFORMATION
  Report Type: Report from Study
  Country: US (occurrence: US)
  Receive Date: 20220829
  Receipt Date: 20250915
  Transmission Date: 20251021
  Serious: Yes (Hospitalization, Other)
  Sender: TAKEDA
  Company Number: US-TAKEDA-2022TUS059956

PATIENT
  Age: 65 Year
  Sex: Female

DRUGS (15)
  1. TEDUGLUTIDE [Suspect]
     Active Substance: TEDUGLUTIDE
     Indication: Short-bowel syndrome
     Dosage: 2.27 MILLIGRAM, QD
     Dates: start: 20220818
  2. TEDUGLUTIDE [Suspect]
     Active Substance: TEDUGLUTIDE
  3. TEDUGLUTIDE [Suspect]
     Active Substance: TEDUGLUTIDE
     Dosage: 1.5 MILLIGRAM, QD
  4. TEDUGLUTIDE [Suspect]
     Active Substance: TEDUGLUTIDE
     Dosage: 1.8 MILLIGRAM, QD
  5. TEDUGLUTIDE [Suspect]
     Active Substance: TEDUGLUTIDE
     Dosage: 2.27 MILLIGRAM, QD
     Dates: start: 202208
  6. TEDUGLUTIDE [Suspect]
     Active Substance: TEDUGLUTIDE
     Dosage: 0.23 MILLILITER, QD
     Dates: start: 20240814
  7. ELIQUIS [Suspect]
     Active Substance: APIXABAN
     Indication: Product used for unknown indication
  8. BIOTIN [Concomitant]
     Active Substance: BIOTIN
     Indication: Product used for unknown indication
  9. RESTASIS [Concomitant]
     Active Substance: CYCLOSPORINE
     Indication: Product used for unknown indication
     Dosage: 1 DOSAGE FORM, BID
  10. DIPHENHYDRAMINE [Concomitant]
     Active Substance: DIPHENHYDRAMINE
     Indication: Pruritus
     Dosage: 25 MILLIGRAM, Q6HR
  11. LOVENOX [Concomitant]
     Active Substance: ENOXAPARIN SODIUM
     Indication: Product used for unknown indication
     Dosage: UNK UNK, BID
     Dates: start: 20240813
  12. ZOFRAN [Concomitant]
     Active Substance: ONDANSETRON HYDROCHLORIDE
     Indication: Nausea
     Dosage: 4 MILLIGRAM, Q8HR
     Dates: start: 20231103
  13. ZOFRAN [Concomitant]
     Active Substance: ONDANSETRON HYDROCHLORIDE
     Indication: Vomiting
  14. PROTONIX [Concomitant]
     Active Substance: PANTOPRAZOLE SODIUM
     Indication: Product used for unknown indication
     Dosage: UNK UNK, BID
     Dates: start: 20240607
  15. TPN [Concomitant]
     Active Substance: AMINO ACIDS\DEXTROSE\ELECTROLYTES NOS\SOYBEAN OIL
     Indication: Product used for unknown indication

REACTIONS (23)
  - Deep vein thrombosis [Unknown]
  - Pulmonary embolism [Unknown]
  - Accident [Unknown]
  - Thrombosis [Unknown]
  - Tachycardia [Unknown]
  - Swelling [Unknown]
  - Neck pain [Unknown]
  - Presyncope [Unknown]
  - Chest discomfort [Unknown]
  - Chest pain [Unknown]
  - Peripheral swelling [Unknown]
  - Dyspnoea exertional [Unknown]
  - Muscle spasms [Unknown]
  - Ear pruritus [Unknown]
  - Nasal pruritus [Unknown]
  - Eye pruritus [Unknown]
  - Pruritus [Unknown]
  - Electrolyte imbalance [Unknown]
  - Headache [Unknown]
  - Decreased appetite [Unknown]
  - Nausea [Unknown]
  - Abdominal pain [Unknown]
  - Injection site pruritus [Unknown]

NARRATIVE: CASE EVENT DATE: 20220824
